FAERS Safety Report 9192194 (Version 1)
Quarter: 2013Q1

REPORT INFORMATION
  Report Type: Spontaneous
  Country: US (occurrence: None)
  Receive Date: 20130326
  Receipt Date: 20130326
  Transmission Date: 20140127
  Serious: Yes (Disabling)
  Sender: FDA-Public Use
  Company Number: None

PATIENT
  Age: 18 Year
  Sex: Female
  Weight: 90.72 kg

DRUGS (1)
  1. CRYSELLE [Suspect]
     Indication: MENSTRUAL DISORDER
     Dosage: 1 TABLET EACH DAY DAILY
     Dates: start: 20120112, end: 20120223

REACTIONS (3)
  - Thrombosis [None]
  - Cerebrovascular accident [None]
  - Cardiac disorder [None]
